FAERS Safety Report 25202521 (Version 1)
Quarter: 2025Q2

REPORT INFORMATION
  Report Type: Spontaneous
  Country: AT (occurrence: AT)
  Receive Date: 20250416
  Receipt Date: 20250416
  Transmission Date: 20250716
  Serious: Yes (Other)
  Sender: MYLAN
  Company Number: AT-LUNDBECK-DKLU4012673

PATIENT
  Age: 47 Year
  Sex: Female

DRUGS (44)
  1. SERTRALINE [Suspect]
     Active Substance: SERTRALINE HYDROCHLORIDE
     Indication: Depression
  2. SERTRALINE [Suspect]
     Active Substance: SERTRALINE HYDROCHLORIDE
     Route: 065
  3. SERTRALINE [Suspect]
     Active Substance: SERTRALINE HYDROCHLORIDE
     Route: 065
  4. SERTRALINE [Suspect]
     Active Substance: SERTRALINE HYDROCHLORIDE
  5. VENLAFAXINE [Suspect]
     Active Substance: VENLAFAXINE HYDROCHLORIDE
     Indication: Depression
     Dosage: 450 MILLIGRAM, QD
  6. VENLAFAXINE [Suspect]
     Active Substance: VENLAFAXINE HYDROCHLORIDE
     Dosage: 450 MILLIGRAM, QD
     Route: 065
  7. VENLAFAXINE [Suspect]
     Active Substance: VENLAFAXINE HYDROCHLORIDE
     Dosage: 450 MILLIGRAM, QD
     Route: 065
  8. VENLAFAXINE [Suspect]
     Active Substance: VENLAFAXINE HYDROCHLORIDE
     Dosage: 450 MILLIGRAM, QD
  9. DULOXETINE [Suspect]
     Active Substance: DULOXETINE
     Indication: Depression
  10. DULOXETINE [Suspect]
     Active Substance: DULOXETINE
     Route: 065
  11. DULOXETINE [Suspect]
     Active Substance: DULOXETINE
     Route: 065
  12. DULOXETINE [Suspect]
     Active Substance: DULOXETINE
  13. CITALOPRAM [Suspect]
     Active Substance: CITALOPRAM
     Indication: Depression
  14. CITALOPRAM [Suspect]
     Active Substance: CITALOPRAM
     Route: 065
  15. CITALOPRAM [Suspect]
     Active Substance: CITALOPRAM
     Route: 065
  16. CITALOPRAM [Suspect]
     Active Substance: CITALOPRAM
  17. ESCITALOPRAM [Suspect]
     Active Substance: ESCITALOPRAM OXALATE
     Indication: Depression
  18. ESCITALOPRAM [Suspect]
     Active Substance: ESCITALOPRAM OXALATE
     Indication: Anxiety
     Route: 065
  19. ESCITALOPRAM [Suspect]
     Active Substance: ESCITALOPRAM OXALATE
     Route: 065
  20. ESCITALOPRAM [Suspect]
     Active Substance: ESCITALOPRAM OXALATE
  21. MIRTAZAPINE [Suspect]
     Active Substance: MIRTAZAPINE
     Indication: Depression
     Dosage: 90 MILLIGRAM, QD
  22. MIRTAZAPINE [Suspect]
     Active Substance: MIRTAZAPINE
     Dosage: 90 MILLIGRAM, QD
     Route: 065
  23. MIRTAZAPINE [Suspect]
     Active Substance: MIRTAZAPINE
     Dosage: 90 MILLIGRAM, QD
     Route: 065
  24. MIRTAZAPINE [Suspect]
     Active Substance: MIRTAZAPINE
     Dosage: 90 MILLIGRAM, QD
  25. BUPROPION [Suspect]
     Active Substance: BUPROPION
     Indication: Depression
  26. BUPROPION [Suspect]
     Active Substance: BUPROPION
     Route: 065
  27. BUPROPION [Suspect]
     Active Substance: BUPROPION
     Route: 065
  28. BUPROPION [Suspect]
     Active Substance: BUPROPION
  29. AGOMELATINE [Suspect]
     Active Substance: AGOMELATINE
     Indication: Depression
  30. AGOMELATINE [Suspect]
     Active Substance: AGOMELATINE
     Route: 065
  31. AGOMELATINE [Suspect]
     Active Substance: AGOMELATINE
     Route: 065
  32. AGOMELATINE [Suspect]
     Active Substance: AGOMELATINE
  33. TRAZODONE [Suspect]
     Active Substance: TRAZODONE HYDROCHLORIDE
     Indication: Depression
  34. TRAZODONE [Suspect]
     Active Substance: TRAZODONE HYDROCHLORIDE
     Route: 065
  35. TRAZODONE [Suspect]
     Active Substance: TRAZODONE HYDROCHLORIDE
     Route: 065
  36. TRAZODONE [Suspect]
     Active Substance: TRAZODONE HYDROCHLORIDE
  37. RISPERIDONE [Suspect]
     Active Substance: RISPERIDONE
     Indication: Depression
  38. RISPERIDONE [Suspect]
     Active Substance: RISPERIDONE
     Route: 065
  39. RISPERIDONE [Suspect]
     Active Substance: RISPERIDONE
     Route: 065
  40. RISPERIDONE [Suspect]
     Active Substance: RISPERIDONE
  41. PREGABALIN [Concomitant]
     Active Substance: PREGABALIN
     Indication: Depression
     Dosage: 300 MILLIGRAM, QD
  42. PREGABALIN [Concomitant]
     Active Substance: PREGABALIN
     Dosage: 300 MILLIGRAM, QD
     Route: 065
  43. PREGABALIN [Concomitant]
     Active Substance: PREGABALIN
     Dosage: 300 MILLIGRAM, QD
     Route: 065
  44. PREGABALIN [Concomitant]
     Active Substance: PREGABALIN
     Dosage: 300 MILLIGRAM, QD

REACTIONS (3)
  - Suicide attempt [Unknown]
  - Suicidal ideation [Unknown]
  - Drug ineffective [Unknown]
